FAERS Safety Report 6735249-6 (Version None)
Quarter: 2010Q2

REPORT INFORMATION
  Report Type: 
  Country: None (occurrence: None)
  Receive Date: 20100521
  Receipt Date: 20100514
  Transmission Date: 20101027
  Serious: Yes (Other)
  Sender: FDA-Public Use
  Company Number: US-PFIZER INC-2010043599

PATIENT
  Sex: Male
  Weight: 86.168 kg

DRUGS (14)
  1. CHANTIX [Suspect]
     Indication: SMOKING CESSATION THERAPY
     Dosage: 0.5 MG, 2X/DAY
     Route: 048
     Dates: start: 20100401, end: 20100401
  2. FLOMAX [Concomitant]
  3. LIPITOR [Concomitant]
  4. PROVIGIL [Concomitant]
  5. PROSCAR [Concomitant]
  6. TRAZODONE [Concomitant]
  7. HYDROMORPHONE [Concomitant]
     Dosage: FREQUENCY: AS NEEDED,
  8. AMBIEN [Concomitant]
  9. DURAGESIC-100 [Concomitant]
     Dosage: UNIT DOSE: 50; FREQUENCY: EVERY 2 DAYS,
     Route: 062
  10. ANDROGEL [Concomitant]
     Dosage: 1%
  11. NORVASC [Concomitant]
  12. CELEXA [Concomitant]
     Dosage: 20 MG, 1X/DAY
  13. PROTONIX [Concomitant]
  14. ACETYLSALICYLIC ACID [Concomitant]

REACTIONS (4)
  - AGITATION [None]
  - DISTURBANCE IN ATTENTION [None]
  - FORMICATION [None]
  - PALPITATIONS [None]
